FAERS Safety Report 8887763 (Version 1)
Quarter: 2012Q4

REPORT INFORMATION
  Report Type: 
  Country: GB (occurrence: GB)
  Receive Date: 20121106
  Receipt Date: 20121106
  Transmission Date: 20130627
  Serious: Yes (Hospitalization)
  Sender: FDA-Public Use
  Company Number: GB-ELI_LILLY_AND_COMPANY-GB201210008921

PATIENT
  Sex: Male

DRUGS (2)
  1. HUMULIN 30% REGULAR, 70% NPH [Suspect]
     Dosage: 28 u, each morning
  2. HUMULIN 30% REGULAR, 70% NPH [Suspect]
     Dosage: 22 u, each evening

REACTIONS (2)
  - Haemorrhage [Unknown]
  - Vomiting [Unknown]
